FAERS Safety Report 21840736 (Version 1)
Quarter: 2023Q1

REPORT INFORMATION
  Report Type: Spontaneous
  Country: US (occurrence: US)
  Receive Date: 20230110
  Receipt Date: 20230110
  Transmission Date: 20230418
  Serious: No
  Sender: FDA-Public Use
  Company Number: US-BIOGEN-2023BI01179993

PATIENT
  Sex: Female

DRUGS (1)
  1. TECFIDERA [Suspect]
     Active Substance: DIMETHYL FUMARATE
     Indication: Multiple sclerosis
     Route: 050
     Dates: start: 20150904

REACTIONS (4)
  - Product dose omission issue [Unknown]
  - Insomnia [Recovered/Resolved]
  - Restlessness [Recovered/Resolved]
  - Bruxism [Recovered/Resolved]

NARRATIVE: CASE EVENT DATE: 20150101
